FAERS Safety Report 5590164-9 (Version None)
Quarter: 2008Q1

REPORT INFORMATION
  Report Type: 
  Country: None (occurrence: None)
  Receive Date: 20080114
  Receipt Date: 20080108
  Transmission Date: 20080703
  Serious: Yes (Death, Life-Threatening, Hospitalization, Other)
  Sender: FDA-Public Use
  Company Number: CA-AVENTIS-200810317GDDC

PATIENT
  Age: 73 Year
  Sex: Male

DRUGS (5)
  1. DOCETAXEL [Suspect]
     Indication: NON-SMALL CELL LUNG CANCER
     Route: 042
     Dates: start: 20071002, end: 20071114
  2. ANTINEOPLASTIC AND IMMUNOMODULATING AGENTS [Suspect]
     Indication: NON-SMALL CELL LUNG CANCER
     Dosage: DOSE: 200 MG DAILY FOR 14 DAYS, THEN 7 DAYS OFF
     Route: 048
     Dates: start: 20071002, end: 20071120
  3. CODEINE [Concomitant]
     Indication: COUGH
     Dates: start: 20071001
  4. SENNA ALEXANDRINA [Concomitant]
     Indication: CONSTIPATION
     Dates: start: 20071007, end: 20071028
  5. EXLAX [Concomitant]
     Indication: CONSTIPATION
     Dates: start: 20071020

REACTIONS (4)
  - PNEUMONIA [None]
  - PULMONARY EMBOLISM [None]
  - RESPIRATORY FAILURE [None]
  - SEPSIS [None]
